FAERS Safety Report 13591564 (Version 3)
Quarter: 2018Q2

REPORT INFORMATION
  Report Type: Spontaneous
  Country: US (occurrence: US)
  Receive Date: 20170530
  Receipt Date: 20180614
  Transmission Date: 20180711
  Serious: Yes (Other)
  Sender: FDA-Public Use
  Company Number: US-MALLINCKRODT-T201702166

PATIENT
  Age: 77 Year
  Sex: Female
  Weight: 87 kg

DRUGS (4)
  1. FENTANYL TRANSDERMAL SYSTEM [Suspect]
     Active Substance: FENTANYL
     Indication: BACK PAIN
     Dosage: 25 MCG/HR, EVERY 72 HOURS
     Route: 062
  2. OXYCODONE AND ACETAMINOPHEN [Concomitant]
     Active Substance: ACETAMINOPHEN\OXYCODONE HYDROCHLORIDE
     Indication: PAIN
     Dosage: 10/325 MG A DAY BY BREAKING THE TABLET IN HALF
  3. FENTANYL TRANSDERMAL SYSTEM [Suspect]
     Active Substance: FENTANYL
     Indication: PAIN
     Dosage: 25 MCG/HR, EVERY 72 HOURS
     Route: 062
     Dates: start: 201609
  4. OXYCODONE [Concomitant]
     Active Substance: OXYCODONE
     Indication: PAIN

REACTIONS (12)
  - Musculoskeletal pain [Not Recovered/Not Resolved]
  - Arthritis [Unknown]
  - Ankle fracture [Unknown]
  - Breast cancer [Unknown]
  - Drug effect variable [Unknown]
  - Drug ineffective [Unknown]
  - Product quality issue [Unknown]
  - Breast operation [Unknown]
  - Bone disorder [Unknown]
  - Multiple use of single-use product [Unknown]
  - Memory impairment [Unknown]
  - Product adhesion issue [Unknown]

NARRATIVE: CASE EVENT DATE: 201702
